FAERS Safety Report 20151792 (Version 1)
Quarter: 2021Q4

REPORT INFORMATION
  Report Type: Spontaneous
  Country: JP (occurrence: JP)
  Receive Date: 20211206
  Receipt Date: 20211206
  Transmission Date: 20220304
  Serious: Yes (Death, Other)
  Sender: FDA-Public Use
  Company Number: JP-MSD-M2021-28863

PATIENT
  Age: 60 Year
  Sex: Male

DRUGS (1)
  1. KEYTRUDA [Suspect]
     Active Substance: PEMBROLIZUMAB
     Dosage: 200 MILLIGRAM, Q3W
     Route: 041
     Dates: start: 20210121, end: 20210412

REACTIONS (2)
  - Malignant neoplasm progression [Fatal]
  - Interstitial lung disease [Recovering/Resolving]

NARRATIVE: CASE EVENT DATE: 20210101
